FAERS Safety Report 12696051 (Version 1)
Quarter: 2016Q3

REPORT INFORMATION
  Report Type: Report from Study
  Country: US (occurrence: US)
  Receive Date: 20160829
  Receipt Date: 20160829
  Transmission Date: 20161109
  Serious: Yes (Hospitalization)
  Sender: FDA-Public Use
  Company Number: US-EMD SERONO-7176976

PATIENT
  Age: 30 Year
  Sex: Female

DRUGS (5)
  1. REBIF [Suspect]
     Active Substance: INTERFERON BETA-1A
     Indication: MULTIPLE SCLEROSIS
     Route: 058
     Dates: start: 20120509, end: 20121121
  2. ZOLOFT [Concomitant]
     Active Substance: SERTRALINE HYDROCHLORIDE
     Indication: FEELING OF RELAXATION
  3. FEXOFENADINE [Concomitant]
     Active Substance: FEXOFENADINE\FEXOFENADINE HYDROCHLORIDE
     Indication: HYPERSENSITIVITY
  4. AMANTADINE [Suspect]
     Active Substance: AMANTADINE
     Indication: FATIGUE
     Dates: start: 20121114, end: 20121121
  5. ADDERALL [Concomitant]
     Active Substance: AMPHETAMINE ASPARTATE\AMPHETAMINE SULFATE\DEXTROAMPHETAMINE SACCHARATE\DEXTROAMPHETAMINE SULFATE
     Indication: ATTENTION DEFICIT/HYPERACTIVITY DISORDER

REACTIONS (5)
  - Schizophrenia [Recovered/Resolved]
  - Balance disorder [Unknown]
  - Multiple sclerosis relapse [Not Recovered/Not Resolved]
  - Vision blurred [Unknown]
  - Fatigue [Unknown]

NARRATIVE: CASE EVENT DATE: 20121116
